FAERS Safety Report 5005079-4 (Version None)
Quarter: 2006Q2

REPORT INFORMATION
  Report Type: 
  Country: None (occurrence: None)
  Receive Date: 20060518
  Receipt Date: 20060509
  Transmission Date: 20061013
  Serious: Yes (Other)
  Sender: FDA-Public Use
  Company Number: US-JNJFOC-20060400629

PATIENT
  Sex: Male
  Weight: 88.91 kg

DRUGS (7)
  1. REMICADE [Suspect]
     Route: 042
  2. REMICADE [Suspect]
     Route: 042
  3. REMICADE [Suspect]
     Route: 042
  4. REMICADE [Suspect]
     Route: 042
  5. REMICADE [Suspect]
     Route: 042
  6. REMICADE [Suspect]
     Indication: CROHN'S DISEASE
     Dosage: DISCONTINUED ^SEVERAL MONTHS AGO^.
     Route: 042
  7. AZATHIOPRINE [Concomitant]

REACTIONS (3)
  - ERYTHEMA [None]
  - EYE SWELLING [None]
  - SYSTEMIC LUPUS ERYTHEMATOSUS RASH [None]
